FAERS Safety Report 22173129 (Version 1)
Quarter: 2023Q2

REPORT INFORMATION
  Report Type: Spontaneous
  Country: US (occurrence: None)
  Receive Date: 20230404
  Receipt Date: 20230404
  Transmission Date: 20230721
  Serious: No
  Sender: FDA-Public Use
  Company Number: None

PATIENT
  Age: 57 Year
  Sex: Female

DRUGS (10)
  1. CABENUVA [Suspect]
     Active Substance: CABOTEGRAVIR\RILPIVIRINE
     Indication: HIV infection
     Dosage: OTHER QUANTITY : 600-900MG;?FREQUENCY : MONTHLY;?
     Route: 030
     Dates: start: 20230217
  2. ATORVASTATIN [Concomitant]
  3. CLOPIDOGREL [Concomitant]
     Active Substance: CLOPIDOGREL BISULFATE
  4. DONEPEZIL [Concomitant]
     Active Substance: DONEPEZIL
  5. GABAPENTIN [Concomitant]
  6. LABETALOL [Concomitant]
  7. MELOXICAM [Concomitant]
  8. SPIRONOLACTONE [Concomitant]
  9. VITAMIN C [Concomitant]
     Active Substance: ASCORBIC ACID
  10. VITAMIN D3 [Concomitant]
     Active Substance: CHOLECALCIFEROL

REACTIONS (3)
  - Injection site pain [None]
  - Injection site pruritus [None]
  - Injection site nodule [None]

NARRATIVE: CASE EVENT DATE: 20230217
